FAERS Safety Report 13709925 (Version 1)
Quarter: 2017Q3

REPORT INFORMATION
  Report Type: Spontaneous
  Country: US (occurrence: US)
  Receive Date: 20170703
  Receipt Date: 20170703
  Transmission Date: 20171127
  Serious: No
  Sender: FDA-Public Use
  Company Number: US-WEST-WARD PHARMACEUTICALS CORP.-US-H14001-16-01646

PATIENT
  Sex: Female

DRUGS (2)
  1. LETROZOLE. [Suspect]
     Active Substance: LETROZOLE
     Indication: BREAST CANCER
     Route: 048
     Dates: start: 20111128, end: 201204
  2. BETA BLOCKER [Concomitant]
     Active Substance: UNSPECIFIED INGREDIENT
     Indication: PRODUCT USED FOR UNKNOWN INDICATION
     Route: 065

REACTIONS (5)
  - Pain in extremity [Recovered/Resolved]
  - Pain [Recovered/Resolved]
  - Arthralgia [Unknown]
  - Depression [Recovered/Resolved]
  - Unevaluable event [Unknown]
